FAERS Safety Report 23706655 (Version 1)
Quarter: 2024Q2

REPORT INFORMATION
  Report Type: Spontaneous
  Country: US (occurrence: US)
  Receive Date: 20240404
  Receipt Date: 20240404
  Transmission Date: 20240716
  Serious: Yes (Other)
  Sender: FDA-Public Use
  Company Number: US-ENDO-CASE-0040760

PATIENT
  Sex: Male

DRUGS (1)
  1. APLISOL [Suspect]
     Active Substance: TUBERCULIN PURIFIED PROTEIN DERIVATIVE

REACTIONS (11)
  - Dizziness [Unknown]
  - Dizziness [Unknown]
  - Tachycardia [Unknown]
  - Seizure [Unknown]
  - Vital functions abnormal [Unknown]
  - Pyrexia [Unknown]
  - Anxiety [Unknown]
  - Fear [Unknown]
  - Emotional distress [Unknown]
  - Sensory disturbance [Unknown]
  - Syncope [Unknown]
